FAERS Safety Report 4864511-7 (Version None)
Quarter: 2005Q4

REPORT INFORMATION
  Report Type: 
  Country: None (occurrence: None)
  Receive Date: 20051222
  Receipt Date: 20051118
  Transmission Date: 20060501
  Serious: Yes (Hospitalization)
  Sender: FDA-Public Use
  Company Number: JP-ROCHE-425960

PATIENT
  Age: 34 Year
  Sex: Female
  Weight: 50 kg

DRUGS (3)
  1. RIVOTRIL [Suspect]
     Indication: CEREBRAL PALSY
     Dosage: START DATE: ALSO REPORTED AS BEFORE 2003. COMMENT OF 1-2-1-1 TAB.
     Route: 048
     Dates: start: 20030615
  2. MERCAZOLE [Suspect]
     Indication: BASEDOW'S DISEASE
     Route: 048
     Dates: start: 20050901, end: 20050920
  3. MERCAZOLE [Suspect]
     Route: 048
     Dates: start: 20050921, end: 20051010

REACTIONS (3)
  - AGRANULOCYTOSIS [None]
  - MALAISE [None]
  - PHARYNGOLARYNGEAL PAIN [None]
